FAERS Safety Report 4267527-7 (Version None)
Quarter: 2004Q2

REPORT INFORMATION
  Report Type: 
  Country: None (occurrence: None)
  Receive Date: 20040109
  Receipt Date: 20030805
  Transmission Date: 20050107
  Serious: No
  Sender: FDA-Public Use
  Company Number: US-GLAXOSMITHKLINE-A0420764A

PATIENT
  Sex: Male

DRUGS (3)
  1. BUPROPION HCL [Suspect]
     Indication: EX-SMOKER
     Dosage: 100MG TWICE PER DAY
     Route: 048
  2. ASPIRIN [Concomitant]
     Dosage: 81MG PER DAY
     Route: 065
  3. CONCURRENT MEDICATIONS [Concomitant]

REACTIONS (1)
  - TINNITUS [None]
